FAERS Safety Report 5277499-4 (Version None)
Quarter: 2007Q1

REPORT INFORMATION
  Report Type: 
  Country: None (occurrence: None)
  Receive Date: 20070327
  Receipt Date: 20070319
  Transmission Date: 20070707
  Serious: Yes (Hospitalization)
  Sender: FDA-Public Use
  Company Number: US-JNJFOC-20070304695

PATIENT
  Sex: Male
  Weight: 55.34 kg

DRUGS (5)
  1. PREZISTA [Suspect]
     Indication: HIV INFECTION
     Route: 048
  2. TRIZIVIR [Concomitant]
     Indication: HIV INFECTION
     Route: 065
  3. EFAVIRENZ [Concomitant]
     Indication: HIV INFECTION
     Route: 065
  4. FOSAMPRENAVIR [Concomitant]
     Indication: HIV INFECTION
     Route: 065
  5. KALETRA [Concomitant]
     Indication: HIV INFECTION
     Route: 065

REACTIONS (1)
  - PANCYTOPENIA [None]
